FAERS Safety Report 4744856-1 (Version None)
Quarter: 2005Q3

REPORT INFORMATION
  Report Type: 
  Country: None (occurrence: None)
  Receive Date: 20050815
  Receipt Date: 20050809
  Transmission Date: 20060218
  Serious: Yes (Hospitalization)
  Sender: FDA-Public Use
  Company Number: GB-GLAXOSMITHKLINE-B0390172A

PATIENT
  Sex: Female

DRUGS (2)
  1. LAMOTRIGINE [Suspect]
     Dosage: 50MG FOUR TIMES PER DAY
     Route: 048
     Dates: start: 20050726, end: 20050808
  2. UNSPECIFIED MEDICATION [Concomitant]

REACTIONS (4)
  - COORDINATION ABNORMAL [None]
  - DRUG PRESCRIBING ERROR [None]
  - MEDICATION ERROR [None]
  - RESPIRATORY DEPRESSION [None]
